FAERS Safety Report 8455425-4 (Version None)
Quarter: 2012Q2

REPORT INFORMATION
  Report Type: 
  Country: None (occurrence: None)
  Receive Date: 20120621
  Receipt Date: 20120611
  Transmission Date: 20120825
  Serious: Yes (Hospitalization)
  Sender: FDA-Public Use
  Company Number: JP-VERTEX PHARMACEUTICALS INC.-AE-2012-008845

PATIENT
  Age: 69 Year
  Sex: Female

DRUGS (14)
  1. TELAVIC (TELAPREVIR) [Suspect]
     Indication: HEPATITIS C
     Route: 048
     Dates: start: 20120223, end: 20120411
  2. LOXONIN [Concomitant]
     Route: 048
  3. PEGINTERFERON ALFA-2B [Concomitant]
     Route: 051
  4. NAUZELIN OD [Concomitant]
     Route: 048
     Dates: start: 20120224
  5. FEBURIC [Concomitant]
     Route: 048
  6. RIBAVIRIN [Concomitant]
     Indication: HEPATITIS C
     Route: 048
     Dates: start: 20120223, end: 20120307
  7. RIBAVIRIN [Concomitant]
     Route: 048
     Dates: start: 20120426
  8. TELAVIC (TELAPREVIR) [Suspect]
     Route: 048
     Dates: start: 20120412
  9. PEGINTERFERON ALFA-2B [Concomitant]
     Indication: HEPATITIS C
     Route: 051
     Dates: start: 20120223, end: 20120229
  10. PEGINTERFERON ALFA-2B [Concomitant]
     Route: 051
     Dates: start: 20120301, end: 20120328
  11. RIBAVIRIN [Concomitant]
     Route: 048
     Dates: start: 20120308, end: 20120314
  12. RIBAVIRIN [Concomitant]
     Route: 048
     Dates: start: 20120315, end: 20120425
  13. PEGINTERFERON ALFA-2B [Concomitant]
     Route: 051
     Dates: start: 20120329
  14. EPADEL S [Concomitant]
     Route: 048
     Dates: start: 20120223

REACTIONS (1)
  - BRONCHITIS [None]
